FAERS Safety Report 11322465 (Version 1)
Quarter: 2015Q3

REPORT INFORMATION
  Report Type: Spontaneous
  Country: US (occurrence: None)
  Receive Date: 20150728
  Receipt Date: 20150728
  Transmission Date: 20151125
  Serious: Yes (Hospitalization)
  Sender: FDA-Public Use
  Company Number: US-H14001-15-01425

PATIENT
  Age: 4 Year
  Sex: Male

DRUGS (1)
  1. AMOXICILLIN (AMOXICILLIN) (UNKNOWN) (AMOXICILLIN) [Suspect]
     Active Substance: AMOXICILLIN
     Indication: PRODUCT USED FOR UNKNOWN INDICATION

REACTIONS (6)
  - Eosinophilia [None]
  - Rash papular [None]
  - Accidental exposure to product [None]
  - Diarrhoea [None]
  - Leukocytosis [None]
  - Infection [None]
